FAERS Safety Report 4778712-X (Version None)
Quarter: 2005Q3

REPORT INFORMATION
  Report Type: 
  Country: None (occurrence: None)
  Receive Date: 20050926
  Receipt Date: 20050915
  Transmission Date: 20060218
  Serious: Yes (Other)
  Sender: FDA-Public Use
  Company Number: RO-ROCHE-417840

PATIENT
  Age: 50 Year
  Sex: Female

DRUGS (2)
  1. PEGASYS [Suspect]
     Dosage: PREFILLED SYRINGE.
     Route: 058
     Dates: start: 20050515
  2. COPEGUS [Concomitant]
     Route: 048
     Dates: start: 20050515

REACTIONS (1)
  - BONE FISSURE [None]
